FAERS Safety Report 11437233 (Version 1)
Quarter: 2015Q3

REPORT INFORMATION
  Report Type: Spontaneous
  Country: US (occurrence: US)
  Receive Date: 20150821
  Receipt Date: 20150821
  Transmission Date: 20151125
  Serious: No
  Sender: FDA-Public Use
  Company Number: US-ELI_LILLY_AND_COMPANY-US200703004033

PATIENT
  Sex: Male

DRUGS (3)
  1. CYMBALTA [Suspect]
     Active Substance: DULOXETINE HYDROCHLORIDE
     Indication: PANIC DISORDER
     Dosage: 30 MG, DAILY (1/D)
     Dates: start: 20070316
  2. XANAX [Concomitant]
     Active Substance: ALPRAZOLAM
  3. LUNESTA [Concomitant]
     Active Substance: ESZOPICLONE

REACTIONS (4)
  - Nausea [Recovered/Resolved]
  - Feeling jittery [Unknown]
  - Muscle spasms [Unknown]
  - Staring [Unknown]

NARRATIVE: CASE EVENT DATE: 20070317
